FAERS Safety Report 13520582 (Version 1)
Quarter: 2017Q2

REPORT INFORMATION
  Report Type: Spontaneous
  Country: TR (occurrence: TR)
  Receive Date: 20170508
  Receipt Date: 20170508
  Transmission Date: 20170830
  Serious: Yes (Other)
  Sender: FDA-Public Use
  Company Number: TR-ALEMBIC PHARMACUETICALS LIMITED-2017SCAL000373

PATIENT

DRUGS (1)
  1. PREGABALIN. [Suspect]
     Active Substance: PREGABALIN
     Indication: EUPHORIC MOOD
     Dosage: 4800 MG, QD (32 TABLETS X 150MG)
     Route: 065

REACTIONS (9)
  - Hyperhidrosis [Unknown]
  - Vomiting [Unknown]
  - Restlessness [Unknown]
  - Withdrawal syndrome [Unknown]
  - Tachycardia [Unknown]
  - Therapeutic response unexpected [Unknown]
  - Depression [Unknown]
  - Drug use disorder [Unknown]
  - Agitation [Unknown]
